FAERS Safety Report 8361324-9 (Version None)
Quarter: 2012Q2

REPORT INFORMATION
  Report Type: 
  Country: None (occurrence: None)
  Receive Date: 20120515
  Receipt Date: 20110804
  Transmission Date: 20120825
  Serious: Yes (Other)
  Sender: FDA-Public Use
  Company Number: GB-ALEXION PHARMACEUTICALS INC.-A201101345

PATIENT
  Sex: Female

DRUGS (1)
  1. SOLIRIS [Suspect]
     Indication: PAROXYSMAL NOCTURNAL HAEMOGLOBINURIA
     Dosage: 1200 MG FORTNIGHTLY (EVERY FOURTEEN NIGHTS)
     Route: 042
     Dates: start: 20090401

REACTIONS (4)
  - MOUTH INJURY [None]
  - CONVULSION [None]
  - HEADACHE [None]
  - FEELING ABNORMAL [None]
